FAERS Safety Report 15854202 (Version 1)
Quarter: 2019Q1

REPORT INFORMATION
  Report Type: Spontaneous
  Country: FR (occurrence: FR)
  Receive Date: 20190122
  Receipt Date: 20190122
  Transmission Date: 20190417
  Serious: Yes (Other)
  Sender: FDA-Public Use
  Company Number: FR-LEO PHARMA-316260

PATIENT
  Age: 40 Year
  Sex: Male

DRUGS (1)
  1. PICATO [Suspect]
     Active Substance: INGENOL MEBUTATE
     Indication: ANOGENITAL WARTS
     Dates: start: 20180216, end: 20180217

REACTIONS (2)
  - Product use in unapproved indication [Unknown]
  - Penile necrosis [Recovered/Resolved with Sequelae]

NARRATIVE: CASE EVENT DATE: 20180216
